FAERS Safety Report 13018059 (Version 3)
Quarter: 2017Q4

REPORT INFORMATION
  Report Type: Spontaneous
  Country: US (occurrence: US)
  Receive Date: 20161212
  Receipt Date: 20171227
  Transmission Date: 20180320
  Serious: Yes (Death)
  Sender: FDA-Public Use
  Company Number: US-PFIZER INC-2016571078

PATIENT
  Age: 80 Year
  Sex: Male

DRUGS (2)
  1. HEPARIN SODIUM. [Suspect]
     Active Substance: HEPARIN SODIUM
     Indication: INTRA-AORTIC BALLOON PLACEMENT
     Dosage: UNK
  2. EPTIFIBATIDE. [Suspect]
     Active Substance: EPTIFIBATIDE
     Indication: THROMBOSIS
     Dosage: UNK

REACTIONS (1)
  - Pulmonary haemorrhage [Fatal]
